FAERS Safety Report 16868483 (Version 6)
Quarter: 2020Q3

REPORT INFORMATION
  Report Type: Spontaneous
  Country: US (occurrence: US)
  Receive Date: 20190930
  Receipt Date: 20200701
  Transmission Date: 20201102
  Serious: No
  Sender: FDA-Public Use
  Company Number: US-PFIZER INC-2019417677

PATIENT
  Age: 52 Year
  Sex: Male

DRUGS (2)
  1. INLYTA [Suspect]
     Active Substance: AXITINIB
     Indication: RENAL CANCER
     Dosage: 5 MG, 2X/DAY (1 TABLET 2 TIMES DAILY WITH 8 OZ OF WATER; AVOID GRAPEFRUIT JUICE)
     Route: 048
     Dates: start: 201909
  2. KEYTRUDA [Concomitant]
     Active Substance: PEMBROLIZUMAB
     Dosage: UNK

REACTIONS (3)
  - Feeling abnormal [Unknown]
  - Gastric disorder [Unknown]
  - Diarrhoea [Unknown]
